FAERS Safety Report 25502800 (Version 1)
Quarter: 2025Q3

REPORT INFORMATION
  Report Type: Report from Study
  Country: EG (occurrence: EG)
  Receive Date: 20250702
  Receipt Date: 20250702
  Transmission Date: 20251021
  Serious: Yes (Other)
  Sender: ROCHE
  Company Number: EG-ROCHE-10000325489

PATIENT
  Age: 58 Year
  Sex: Female
  Weight: 89 kg

DRUGS (2)
  1. PHESGO [Suspect]
     Active Substance: HYALURONIDASE-ZZXF\PERTUZUMAB\TRASTUZUMAB
     Indication: Breast cancer
     Route: 058
     Dates: start: 20250510
  2. EMPACOZA [Concomitant]
     Indication: Diabetes mellitus
     Route: 048

REACTIONS (2)
  - Epistaxis [Unknown]
  - Aphonia [Unknown]

NARRATIVE: CASE EVENT DATE: 20250608
